FAERS Safety Report 10067002 (Version 2)
Quarter: 2014Q2

REPORT INFORMATION
  Report Type: Spontaneous
  Country: ES (occurrence: ES)
  Receive Date: 20140409
  Receipt Date: 20140414
  Transmission Date: 20141212
  Serious: Yes (Hospitalization)
  Sender: FDA-Public Use
  Company Number: ES-009507513-1404ESP002112

PATIENT
  Age: 43 Year
  Sex: Male

DRUGS (3)
  1. SIMVASTATIN [Suspect]
     Indication: DYSLIPIDAEMIA
     Dosage: UNK
     Route: 048
  2. AMLODIPINE BESYLATE (+) OLMESARTAN MEDOXOMIL [Concomitant]
     Dosage: UNK
  3. ALLOPURINOL [Concomitant]
     Dosage: UNK

REACTIONS (1)
  - Toxic skin eruption [Unknown]
